FAERS Safety Report 9697030 (Version 1)
Quarter: 2013Q4

REPORT INFORMATION
  Report Type: Report from Study
  Country: DE (occurrence: DE)
  Receive Date: 20131120
  Receipt Date: 20131120
  Transmission Date: 20140711
  Serious: Yes (Hospitalization)
  Sender: FDA-Public Use
  Company Number: DE-ABBVIE-13P-062-1169814-00

PATIENT
  Age: 73 Year
  Sex: Male
  Weight: 75 kg

DRUGS (8)
  1. HUMIRA [Suspect]
     Indication: RHEUMATOID ARTHRITIS
     Route: 058
     Dates: start: 20121120
  2. DIOVAN [Concomitant]
     Indication: HYPERTENSION
  3. AMLODIPINE [Concomitant]
     Indication: HYPERTENSION
  4. AMLODIPINE [Concomitant]
     Indication: CORONARY ARTERY DISEASE
  5. BELOC-ZOK [Concomitant]
     Indication: CORONARY ARTERY DISEASE
  6. TORASEMIDE [Concomitant]
     Indication: CORONARY ARTERY DISEASE
  7. MARCUMAR [Concomitant]
     Indication: CORONARY ARTERY DISEASE
  8. ALENDRONIC ACID [Concomitant]
     Indication: OSTEOPOROSIS

REACTIONS (1)
  - Coronary artery disease [Recovered/Resolved]
